FAERS Safety Report 10374725 (Version 1)
Quarter: 2014Q3

REPORT INFORMATION
  Report Type: Spontaneous
  Country: JP (occurrence: JP)
  Receive Date: 20140811
  Receipt Date: 20140811
  Transmission Date: 20150326
  Serious: Yes (Other)
  Sender: FDA-Public Use
  Company Number: JP-ELI_LILLY_AND_COMPANY-JP201408000508

PATIENT
  Age: 60 Year
  Sex: Female

DRUGS (1)
  1. GEMZAR [Suspect]
     Active Substance: GEMCITABINE HYDROCHLORIDE
     Indication: ADENOCARCINOMA PANCREAS
     Route: 042

REACTIONS (5)
  - Acute myeloid leukaemia [Recovered/Resolved]
  - Pancytopenia [Unknown]
  - Systemic candida [Unknown]
  - Anastomotic ulcer [Unknown]
  - Adenoviral haemorrhagic cystitis [Unknown]
